FAERS Safety Report 18639347 (Version 1)
Quarter: 2020Q4

REPORT INFORMATION
  Report Type: Report from Study
  Country: PT (occurrence: PT)
  Receive Date: 20201219
  Receipt Date: 20201219
  Transmission Date: 20210114
  Serious: Yes (Other)
  Sender: FDA-Public Use
  Company Number: NVSC2020PT334232

PATIENT
  Sex: Male

DRUGS (1)
  1. ENTRESTO [Suspect]
     Active Substance: SACUBITRIL\VALSARTAN
     Indication: CARDIAC FAILURE
     Dosage: 50 MG 1.6X10 ^8 OF VIABLE (CAR-T [CHIMERIC ANTIGEN RECEPTOR] POSITIVE CELLS OR OTHER
     Route: 065
     Dates: start: 20201211, end: 20201211

REACTIONS (4)
  - Hyperglycaemia [Unknown]
  - Malaise [Recovering/Resolving]
  - Hypotension [Recovering/Resolving]
  - Neck pain [Unknown]
